FAERS Safety Report 16905959 (Version 9)
Quarter: 2021Q2

REPORT INFORMATION
  Report Type: Report from Study
  Country: None (occurrence: FR)
  Receive Date: 20191010
  Receipt Date: 20210507
  Transmission Date: 20210716
  Serious: Yes (Other)
  Sender: FDA-Public Use
  Company Number: FR-ABBVIE-19K-056-2953127-00

PATIENT
  Age: 68 Year
  Sex: Male
  Weight: 86 kg

DRUGS (34)
  1. MOVICOL [Concomitant]
     Active Substance: POLYETHYLENE GLYCOL 3350\POTASSIUM CHLORIDE\SODIUM BICARBONATE\SODIUM CHLORIDE
     Indication: PRODUCT USED FOR UNKNOWN INDICATION
     Dates: start: 202103
  2. IMOVANE [Concomitant]
     Active Substance: ZOPICLONE
     Indication: INSOMNIA
     Dates: start: 20190823, end: 201909
  3. SPECIAFOLDINE [Concomitant]
     Active Substance: FOLIC ACID
     Indication: VITAMIN SUPPLEMENTATION
     Dates: start: 20200917
  4. OFLOCET [Concomitant]
     Active Substance: OFLOXACIN
     Indication: LUNG DISORDER
     Dates: start: 20200513, end: 20200520
  5. VENCLYXTO [Suspect]
     Active Substance: VENETOCLAX
     Route: 048
     Dates: start: 20190821
  6. ALLOPURINOL. [Concomitant]
     Active Substance: ALLOPURINOL
     Indication: HYPERURICAEMIA
  7. ACTISKENAN [Concomitant]
     Active Substance: MORPHINE SULFATE
     Indication: PAIN
     Dates: start: 20190817, end: 20190818
  8. ACUPAN [Concomitant]
     Active Substance: NEFOPAM HYDROCHLORIDE
     Indication: PAIN
     Dates: start: 20190816, end: 20190829
  9. PLITICAN [Concomitant]
     Active Substance: ALIZAPRIDE HYDROCHLORIDE
     Indication: NAUSEA
     Dates: start: 20190828, end: 20190829
  10. ZARZIO [Concomitant]
     Active Substance: FILGRASTIM
     Indication: NEUTROPENIA
     Dates: start: 20190730
  11. PARACETAMOL [Concomitant]
     Active Substance: ACETAMINOPHEN
     Indication: PAIN
     Dates: start: 20190817, end: 20190818
  12. VALACICLOVIR [Concomitant]
     Active Substance: VALACYCLOVIR HYDROCHLORIDE
     Indication: ANTIVIRAL PROPHYLAXIS
     Dates: start: 20190222
  13. GRANOCYTE [Concomitant]
     Active Substance: LENOGRASTIM
     Indication: NEUTROPENIA
     Dates: start: 20191105
  14. DAFALGAN CODEINE [Concomitant]
     Active Substance: ACETAMINOPHEN\CODEINE PHOSPHATE
     Indication: HEPATIC PAIN
     Dates: start: 202012
  15. VENCLYXTO [Suspect]
     Active Substance: VENETOCLAX
     Route: 048
     Dates: start: 20190813, end: 20190815
  16. ATORVASTATIN [Concomitant]
     Active Substance: ATORVASTATIN
     Indication: DYSLIPIDAEMIA
     Dates: start: 20190222, end: 202103
  17. BACTRIM [Concomitant]
     Active Substance: SULFAMETHOXAZOLE\TRIMETHOPRIM
     Indication: ENDOCARDITIS ENTEROCOCCAL
     Dates: start: 20190917
  18. VENCLYXTO [Suspect]
     Active Substance: VENETOCLAX
     Indication: CHRONIC LYMPHOCYTIC LEUKAEMIA
     Route: 048
     Dates: start: 20190720, end: 20190726
  19. VENCLYXTO [Suspect]
     Active Substance: VENETOCLAX
     Route: 048
     Dates: start: 20190805, end: 20190812
  20. FASTURTEC [Concomitant]
     Active Substance: RASBURICASE
     Indication: HYPOURICAEMIA
     Dates: start: 20190719, end: 20190729
  21. AMOXICILLIN. [Concomitant]
     Active Substance: AMOXICILLIN
     Indication: STREPTOCOCCAL INFECTION
     Dates: start: 20190828, end: 201910
  22. ALLOPURINOL. [Concomitant]
     Active Substance: ALLOPURINOL
     Indication: TUMOUR LYSIS SYNDROME
     Dates: start: 20190822, end: 202103
  23. KAYEXALATE [Concomitant]
     Active Substance: SODIUM POLYSTYRENE SULFONATE
     Indication: HYPERKALAEMIA
     Dates: start: 20190816, end: 20190817
  24. TRAMADOL. [Concomitant]
     Active Substance: TRAMADOL
     Indication: PAIN
     Dates: start: 20190817, end: 20190829
  25. BISOPROLOL [Concomitant]
     Active Substance: BISOPROLOL
     Indication: HYPERTENSION
     Dates: start: 20190222
  26. INEXIUM [Concomitant]
     Active Substance: ESOMEPRAZOLE
     Indication: DYSPEPSIA
     Dates: start: 202010
  27. VENCLYXTO [Suspect]
     Active Substance: VENETOCLAX
     Route: 048
     Dates: start: 20190727, end: 20190804
  28. AUGMENTIN [Concomitant]
     Active Substance: AMOXICILLIN\CLAVULANATE POTASSIUM
     Indication: LUNG DISORDER
     Dates: start: 20200513, end: 20200520
  29. OROZAMUDOL [Concomitant]
     Active Substance: TRAMADOL
     Indication: PAIN
     Dates: start: 20200829
  30. SKENAN [Concomitant]
     Active Substance: MORPHINE SULFATE
     Indication: PAIN
     Dates: start: 202102
  31. PARACETAMOL [Concomitant]
     Active Substance: ACETAMINOPHEN
     Dates: start: 20200829, end: 202008
  32. GENTAMICINE [Concomitant]
     Active Substance: GENTAMICIN
     Indication: STREPTOCOCCAL INFECTION
     Dates: start: 20190829, end: 20190830
  33. KARDEGIC [Concomitant]
     Active Substance: ASPIRIN DL-LYSINE
     Indication: CARDIOVASCULAR EVENT PROPHYLAXIS
     Dates: start: 20190222
  34. PENTACARINAT [Concomitant]
     Active Substance: PENTAMIDINE ISETHIONATE
     Indication: INFECTION PROPHYLAXIS
     Dates: start: 20190222, end: 20190805

REACTIONS (25)
  - Neutropenia [Recovered/Resolved]
  - Lung disorder [Recovered/Resolved]
  - Pancytopenia [Not Recovered/Not Resolved]
  - Hyperuricaemia [Recovered/Resolved]
  - Hyperphosphataemia [Not Recovered/Not Resolved]
  - Abdominal pain [Recovered/Resolved]
  - Vomiting [Not Recovered/Not Resolved]
  - Melaena [Not Recovered/Not Resolved]
  - Hypocalcaemia [Recovered/Resolved]
  - Gastrooesophageal reflux disease [Not Recovered/Not Resolved]
  - Nausea [Not Recovered/Not Resolved]
  - Acute kidney injury [Recovered/Resolved]
  - Tumour lysis syndrome [Recovered/Resolved]
  - Neutropenia [Recovered/Resolved]
  - General physical health deterioration [Not Recovered/Not Resolved]
  - Neutropenia [Recovered/Resolved]
  - Streptococcal endocarditis [Recovered/Resolved]
  - Weight decreased [Not Recovered/Not Resolved]
  - Hyperkalaemia [Recovered/Resolved]
  - Hepatic pain [Not Recovered/Not Resolved]
  - Rectal adenocarcinoma [Not Recovered/Not Resolved]
  - Hyperphosphataemia [Recovered/Resolved]
  - Neutropenia [Recovered/Resolved]
  - Neutropenia [Recovered/Resolved]
  - Anaemia [Not Recovered/Not Resolved]

NARRATIVE: CASE EVENT DATE: 20190722
